FAERS Safety Report 10079929 (Version 1)
Quarter: 2014Q2

REPORT INFORMATION
  Report Type: Spontaneous
  Country: BR (occurrence: BR)
  Receive Date: 20140415
  Receipt Date: 20140415
  Transmission Date: 20141212
  Serious: Yes (Other)
  Sender: FDA-Public Use
  Company Number: PHHY2014BR042198

PATIENT
  Age: 60 Year
  Sex: Female
  Weight: 66 kg

DRUGS (5)
  1. SINVASTACOR [Suspect]
     Indication: BLOOD CHOLESTEROL INCREASED
     Dosage: 20 MG, QD
     Route: 048
     Dates: start: 201401, end: 201401
  2. GLIFAGEN XR500 [Concomitant]
     Indication: DIABETES MELLITUS
     Dosage: 4 OT, QD
  3. METADOXIL [Concomitant]
     Indication: HEPATIC STEATOSIS
     Dosage: 2 OT, QD
  4. ATENOLOL [Concomitant]
     Indication: HYPERTENSION
     Dosage: 100 MG, BID
  5. COLTRAX 600 [Concomitant]
     Indication: OSTEOPOROSIS

REACTIONS (3)
  - Myocardial necrosis marker increased [Not Recovered/Not Resolved]
  - Chest pain [Not Recovered/Not Resolved]
  - Malaise [Not Recovered/Not Resolved]
